FAERS Safety Report 4518243-5 (Version None)
Quarter: 2004Q4

REPORT INFORMATION
  Report Type: 
  Country: None (occurrence: None)
  Receive Date: 20041130
  Receipt Date: 20041102
  Transmission Date: 20050328
  Serious: Yes (Hospitalization)
  Sender: FDA-Public Use
  Company Number: 2004-BP-11169BP

PATIENT
  Sex: Female

DRUGS (7)
  1. MIRAPEX [Suspect]
     Indication: PARKINSON'S DISEASE
     Dosage: 0.375 MG (0.125 MG, TID), PO
     Route: 048
     Dates: start: 20041030, end: 20041101
  2. MODAFINIL [Concomitant]
  3. SIMVASTATIN [Concomitant]
  4. OMEPRAZOLE 20MG SA (OMEPRAZOLE) [Concomitant]
  5. MEMANTINE HCL [Concomitant]
  6. ARICEPT [Concomitant]
  7. SINEMET [Concomitant]

REACTIONS (2)
  - CHILLS [None]
  - TREMOR [None]
